FAERS Safety Report 6344778-9 (Version None)
Quarter: 2009Q3

REPORT INFORMATION
  Report Type: 
  Country: None (occurrence: None)
  Receive Date: 20090904
  Receipt Date: 20090820
  Transmission Date: 20100115
  Serious: Yes (Hospitalization)
  Sender: FDA-Public Use
  Company Number: 2009002535

PATIENT
  Age: 62 Year
  Sex: Male

DRUGS (4)
  1. ERLOTINIB HYDROCHLORIDE [Suspect]
     Indication: PANCREATIC CARCINOMA
     Dosage: (25 MG,QD),ORAL
     Route: 048
     Dates: start: 20090309
  2. GEMCITABINE [Suspect]
     Indication: PANCREATIC CARCINOMA
     Dosage: (750 MG/M2), INTRAVENOUS
     Route: 042
     Dates: start: 20090309
  3. FENTANYL-100 [Concomitant]
  4. DILAUDID [Concomitant]

REACTIONS (1)
  - IMPAIRED GASTRIC EMPTYING [None]
